FAERS Safety Report 13844792 (Version 4)
Quarter: 2017Q4

REPORT INFORMATION
  Report Type: Report from Study
  Country: CO (occurrence: CO)
  Receive Date: 20170808
  Receipt Date: 20171130
  Transmission Date: 20180320
  Serious: Yes (Hospitalization, Other)
  Sender: FDA-Public Use
  Company Number: PHHY2016CO021704

PATIENT
  Age: 87 Year
  Sex: Female
  Weight: 44 kg

DRUGS (15)
  1. TRAZODONE [Suspect]
     Active Substance: TRAZODONE HYDROCHLORIDE
     Indication: SLEEP DISORDER
     Route: 065
  2. ALLOPURINOL. [Concomitant]
     Active Substance: ALLOPURINOL
     Indication: PRODUCT USED FOR UNKNOWN INDICATION
     Dosage: 100 MG, QD
     Route: 048
  3. OMEPRAZOLE. [Suspect]
     Active Substance: OMEPRAZOLE
     Indication: GASTRITIS
     Dosage: UNK UNK, QD
     Route: 065
  4. INDACATEROL [Concomitant]
     Active Substance: INDACATEROL
     Indication: PRODUCT USED FOR UNKNOWN INDICATION
     Dosage: 150 MG, QD
     Route: 048
  5. ACETYLSALICYLIC ACID [Concomitant]
     Active Substance: ASPIRIN
     Indication: PRODUCT USED FOR UNKNOWN INDICATION
     Dosage: UNK UNK, QD
     Route: 065
  6. FUROSEMIDE. [Suspect]
     Active Substance: FUROSEMIDE
     Indication: HYPERTENSION
     Dosage: UNK UNK, QD
     Route: 065
  7. AMLODIPINE [Suspect]
     Active Substance: AMLODIPINE BESYLATE
     Indication: HYPERTENSION
     Dosage: UNK UNK, QD
     Route: 065
  8. JAKAVI [Suspect]
     Active Substance: RUXOLITINIB
     Dosage: 20 MG, QD
     Route: 048
  9. JAKAVI [Suspect]
     Active Substance: RUXOLITINIB
     Indication: PRIMARY MYELOFIBROSIS
     Dosage: 20 MG, BID
     Route: 048
     Dates: start: 20150321
  10. EXJADE [Suspect]
     Active Substance: DEFERASIROX
     Indication: IRON OVERLOAD
     Dosage: 500 MG, QD
     Route: 048
     Dates: start: 20170505
  11. IPRATROPIUM BROMIDE. [Concomitant]
     Active Substance: IPRATROPIUM BROMIDE
     Indication: PRODUCT USED FOR UNKNOWN INDICATION
     Route: 065
  12. BISACODYL. [Concomitant]
     Active Substance: BISACODYL
     Indication: PRODUCT USED FOR UNKNOWN INDICATION
     Route: 065
  13. CARVEDILOL. [Suspect]
     Active Substance: CARVEDILOL
     Indication: PRODUCT USED FOR UNKNOWN INDICATION
     Dosage: 6 MG, QD
     Route: 048
  14. ACETAMINOPHEN AND CODEINE [Concomitant]
     Active Substance: ACETAMINOPHEN\CODEINE PHOSPHATE
     Indication: PAIN
     Dosage: 500/20 MG, TID
     Route: 048
  15. SALBUTAMOL [Concomitant]
     Active Substance: ALBUTEROL
     Indication: PRODUCT USED FOR UNKNOWN INDICATION
     Route: 065

REACTIONS (27)
  - Dyspnoea [Unknown]
  - Gait disturbance [Unknown]
  - Cough [Unknown]
  - Platelet count increased [Unknown]
  - Movement disorder [Unknown]
  - Asthenia [Unknown]
  - Contusion [Unknown]
  - Sensory loss [Unknown]
  - Swelling face [Unknown]
  - Thrombosis [Unknown]
  - Respiratory failure [Unknown]
  - Condition aggravated [Unknown]
  - Primary myelofibrosis [Unknown]
  - Multi-organ disorder [Unknown]
  - Skin discolouration [Unknown]
  - Malaise [Unknown]
  - Mass [Unknown]
  - Asphyxia [Unknown]
  - Choking [Unknown]
  - Feeling of despair [Unknown]
  - Iron overload [Unknown]
  - Osteoporosis [Unknown]
  - General physical condition abnormal [Not Recovered/Not Resolved]
  - Fatigue [Unknown]
  - Renal failure [Unknown]
  - Inflammation [Unknown]
  - Insomnia [Unknown]

NARRATIVE: CASE EVENT DATE: 20170701
